FAERS Safety Report 4880205-6 (Version None)
Quarter: 2005Q4

REPORT INFORMATION
  Report Type: 
  Country: None (occurrence: None)
  Receive Date: 20051223
  Receipt Date: 20051019
  Transmission Date: 20060501
  Serious: No
  Sender: FDA-Public Use
  Company Number: 05P-163-0314579-00

PATIENT
  Age: 31 Year
  Sex: Female
  Weight: 58.9676 kg

DRUGS (10)
  1. HUMIRA [Suspect]
     Indication: REPRODUCTIVE TRACT DISORDER
     Dosage: 40 MG, 1 IN 2 WK, SUBCUTANEOUS
     Route: 058
     Dates: start: 20050701, end: 20051001
  2. DEXAMETHASONE TAB [Concomitant]
  3. NESTABS [Concomitant]
  4. FOLGARD [Concomitant]
  5. ENOXAPARIN SODIUM [Concomitant]
  6. ASPIRIN [Concomitant]
  7. CALCIUM GLUCONATE [Concomitant]
  8. ST JOHN'S WART [Concomitant]
  9. CLOMED [Concomitant]
  10. PROGERLEIN [Concomitant]

REACTIONS (3)
  - CHEST DISCOMFORT [None]
  - DYSPNOEA [None]
  - PHARYNGOLARYNGEAL PAIN [None]
